FAERS Safety Report 7129224-X (Version None)
Quarter: 2010Q4

REPORT INFORMATION
  Report Type: 
  Country: None (occurrence: None)
  Receive Date: 20101130
  Receipt Date: 20101117
  Transmission Date: 20110411
  Serious: Yes (Hospitalization)
  Sender: FDA-Public Use
  Company Number: FR-SANOFI-AVENTIS-2010SA069751

PATIENT
  Age: 79 Year
  Sex: Female

DRUGS (6)
  1. KARDEGIC [Suspect]
     Route: 048
     Dates: end: 20100624
  2. LASILIX [Suspect]
     Route: 048
     Dates: end: 20100625
  3. DIGOXIN [Suspect]
     Route: 048
     Dates: end: 20100625
  4. TRIATEC [Concomitant]
     Route: 048
  5. LANSOYL [Concomitant]
     Route: 048
  6. IMOVANE [Concomitant]
     Route: 048
     Dates: start: 20100601

REACTIONS (3)
  - DEHYDRATION [None]
  - FAECAL VOMITING [None]
  - RENAL FAILURE [None]
